FAERS Safety Report 19688350 (Version 3)
Quarter: 2021Q4

REPORT INFORMATION
  Report Type: Report from Study
  Country: US (occurrence: US)
  Receive Date: 20210812
  Receipt Date: 20211014
  Transmission Date: 20220303
  Serious: Yes (Death, Hospitalization, Other)
  Sender: FDA-Public Use
  Company Number: US-BOEHRINGERINGELHEIM-2021-BI-116276

PATIENT
  Age: 79 Year
  Sex: Male

DRUGS (1)
  1. OFEV [Suspect]
     Active Substance: NINTEDANIB
     Indication: Idiopathic pulmonary fibrosis
     Dosage: OFEV DOSE 300MG DAILY
     Route: 048
     Dates: start: 20210621

REACTIONS (4)
  - Death [Fatal]
  - Idiopathic pulmonary fibrosis [Unknown]
  - Pulmonary haemorrhage [Recovered/Resolved]
  - Pulmonary hypertension [Unknown]

NARRATIVE: CASE EVENT DATE: 20210916
